FAERS Safety Report 4663887-3 (Version None)
Quarter: 2005Q2

REPORT INFORMATION
  Report Type: 
  Country: None (occurrence: None)
  Receive Date: 20050516
  Receipt Date: 20050503
  Transmission Date: 20051028
  Serious: Yes (Hospitalization, Other)
  Sender: FDA-Public Use
  Company Number: 2005070359

PATIENT
  Sex: Male

DRUGS (12)
  1. BEXTRA [Suspect]
     Indication: ARTHRITIS
     Dosage: 10 MG (10 MG, 1 IN 1 D), ORAL
     Route: 048
     Dates: start: 20010101
  2. GEMFIBROZIL [Concomitant]
  3. FUROSEMIDE [Concomitant]
  4. POTASSIUM ACETATE [Concomitant]
  5. DILTIAZEM HYDROCHLORIDE [Concomitant]
  6. ESOMEPRAZOLE (ESOMEPRAZOLE) [Concomitant]
  7. OMEPRAZOLE [Concomitant]
  8. SUCRALFATE [Concomitant]
  9. ASPIRIN [Concomitant]
  10. TOCOPHEROL (TOCOPHEROL) [Concomitant]
  11. FLUOXETINE HCL [Concomitant]
  12. ALPRAZOLAM [Concomitant]

REACTIONS (7)
  - ATRIAL FIBRILLATION [None]
  - BENIGN PROSTATIC HYPERPLASIA [None]
  - CONDITION AGGRAVATED [None]
  - INCISION SITE COMPLICATION [None]
  - MEMORY IMPAIRMENT [None]
  - RENAL CELL CARCINOMA STAGE UNSPECIFIED [None]
  - THYROID OPERATION [None]
